FAERS Safety Report 7711675-3 (Version None)
Quarter: 2011Q3

REPORT INFORMATION
  Report Type: 
  Country: None (occurrence: None)
  Receive Date: 20110826
  Receipt Date: 20110722
  Transmission Date: 20111222
  Serious: No
  Sender: FDA-Public Use
  Company Number: US-BRISTOL-MYERS SQUIBB COMPANY-15918410

PATIENT
  Age: 55 Year
  Sex: Female
  Weight: 181 kg

DRUGS (1)
  1. ONGLYZA [Suspect]
     Indication: BLOOD GLUCOSE

REACTIONS (5)
  - OEDEMA PERIPHERAL [None]
  - HERPES ZOSTER [None]
  - WEIGHT INCREASED [None]
  - COUGH [None]
  - PRURITUS [None]
